FAERS Safety Report 8592497-0 (Version None)
Quarter: 2012Q3

REPORT INFORMATION
  Report Type: 
  Country: None (occurrence: None)
  Receive Date: 20120814
  Receipt Date: 20120730
  Transmission Date: 20120928
  Serious: Yes (Hospitalization, Other)
  Sender: FDA-Public Use
  Company Number: US-009507513-1207USA010319

PATIENT

DRUGS (3)
  1. JANUVIA [Suspect]
     Dosage: 50 MG, QD
     Route: 048
  2. CADUET [Suspect]
     Dosage: 5-5
     Route: 048
  3. JANUVIA [Suspect]
     Dosage: 50 MG, QD

REACTIONS (3)
  - OCULOMUCOCUTANEOUS SYNDROME [None]
  - STEVENS-JOHNSON SYNDROME [None]
  - LIVER DISORDER [None]
